FAERS Safety Report 23531224 (Version 1)
Quarter: 2024Q1

REPORT INFORMATION
  Report Type: Spontaneous
  Country: US (occurrence: None)
  Receive Date: 20240215
  Receipt Date: 20240215
  Transmission Date: 20240409
  Serious: Yes (Death, Hospitalization)
  Sender: FDA-Public Use
  Company Number: None

PATIENT
  Age: 64 Year
  Sex: Female

DRUGS (1)
  1. AMBRISENTAN [Suspect]
     Active Substance: AMBRISENTAN
     Indication: Pulmonary arterial hypertension
     Dosage: FREQUENCY : DAILY;?
     Route: 048
     Dates: start: 20230407, end: 20230620

REACTIONS (6)
  - Epistaxis [None]
  - Dizziness [None]
  - Blood pressure systolic decreased [None]
  - Decreased appetite [None]
  - Hospice care [None]
  - Presyncope [None]

NARRATIVE: CASE EVENT DATE: 20230623
